FAERS Safety Report 10024763 (Version 1)
Quarter: 2014Q1

REPORT INFORMATION
  Report Type: Spontaneous
  Country: FR (occurrence: FR)
  Receive Date: 20140320
  Receipt Date: 20140320
  Transmission Date: 20141002
  Serious: Yes (Life-Threatening, Hospitalization)
  Sender: FDA-Public Use
  Company Number: FR-ASTRAZENECA-2014SE18915

PATIENT
  Age: 17228 Day
  Sex: Female

DRUGS (12)
  1. TENORMINE [Suspect]
     Route: 048
  2. TENORMINE [Suspect]
     Route: 048
     Dates: start: 20140217
  3. LEXOMIL ROCHE [Suspect]
     Route: 048
  4. LEXOMIL ROCHE [Suspect]
     Route: 048
     Dates: start: 20140214, end: 20140214
  5. ZOLPIDEM [Suspect]
     Route: 048
  6. ZOLPIDEM [Suspect]
     Route: 048
     Dates: start: 20140214, end: 20140214
  7. LEVOCETIRIZINE [Suspect]
     Route: 048
  8. SERTRALINE [Interacting]
     Route: 048
  9. SERTRALINE [Interacting]
     Route: 048
     Dates: start: 20140214, end: 20140214
  10. THERALENE [Interacting]
     Route: 048
  11. ALCOHOL [Suspect]
     Route: 048
  12. TRAMADOL [Concomitant]

REACTIONS (8)
  - Drug interaction [Unknown]
  - Coma [Recovered/Resolved]
  - Toxicity to various agents [Unknown]
  - Pneumonia aspiration [Unknown]
  - Pneumonia haemophilus [Unknown]
  - Pneumonia streptococcal [Unknown]
  - Hypotension [Recovered/Resolved]
  - Excoriation [Unknown]
